FAERS Safety Report 5468477-0 (Version None)
Quarter: 2007Q3

REPORT INFORMATION
  Report Type: 
  Country: None (occurrence: None)
  Receive Date: 20070926
  Receipt Date: 20070620
  Transmission Date: 20080115
  Serious: No
  Sender: FDA-Public Use
  Company Number: US-BRISTOL-MYERS SQUIBB COMPANY-13820766

PATIENT
  Age: 60 Year
  Sex: Female
  Weight: 100 kg

DRUGS (8)
  1. ORENCIA [Suspect]
     Indication: RHEUMATOID ARTHRITIS
     Dates: start: 20070201
  2. METHOTREXATE [Concomitant]
  3. WARFARIN SODIUM [Concomitant]
  4. CYMBALTA [Concomitant]
  5. AMBIEN CR [Concomitant]
  6. ETODOLAC [Concomitant]
  7. LORTAB [Concomitant]
  8. MULTI-VITAMIN [Concomitant]

REACTIONS (2)
  - THERAPEUTIC RESPONSE DECREASED [None]
  - WEIGHT INCREASED [None]
